FAERS Safety Report 5057352-1 (Version None)
Quarter: 2006Q3

REPORT INFORMATION
  Report Type: 
  Country: None (occurrence: None)
  Receive Date: 20060721
  Receipt Date: 20050824
  Transmission Date: 20061208
  Serious: No
  Sender: FDA-Public Use
  Company Number: US-GLAXOSMITHKLINE-A0571671A

PATIENT
  Age: 75 Year
  Sex: Female

DRUGS (6)
  1. AVANDIA [Suspect]
     Dosage: 4MG PER DAY
     Route: 048
     Dates: start: 20050801, end: 20050801
  2. GLUCOTROL [Concomitant]
  3. METFORMIN [Concomitant]
  4. ZETIA [Concomitant]
  5. TRICOR [Concomitant]
  6. COZAAR [Concomitant]

REACTIONS (4)
  - ASTHENIA [None]
  - HYPOAESTHESIA [None]
  - PARAESTHESIA [None]
  - VISION BLURRED [None]
